FAERS Safety Report 6460587-4 (Version None)
Quarter: 2009Q4

REPORT INFORMATION
  Report Type: 
  Country: None (occurrence: None)
  Receive Date: 20091130
  Receipt Date: 20091118
  Transmission Date: 20100525
  Serious: Yes (Other)
  Sender: FDA-Public Use
  Company Number: JP-JNJFOC-20090905529

PATIENT
  Age: 30 Year
  Sex: Female

DRUGS (1)
  1. CONCERTA [Suspect]
     Indication: DRUG ABUSE
     Route: 048

REACTIONS (2)
  - DRUG ABUSE [None]
  - DRUG DIVERSION [None]
